FAERS Safety Report 11821817 (Version 1)
Quarter: 2015Q4

REPORT INFORMATION
  Report Type: Spontaneous
  Country: US (occurrence: US)
  Receive Date: 20151210
  Receipt Date: 20151210
  Transmission Date: 20160305
  Serious: No
  Sender: FDA-Public Use
  Company Number: US-JNJFOC-20150903473

PATIENT
  Age: 84 Year
  Sex: Female

DRUGS (4)
  1. CALCIUM 600+D [Concomitant]
     Active Substance: CALCIUM\VITAMIN D
  2. IMBRUVICA [Suspect]
     Active Substance: IBRUTINIB
     Indication: CHRONIC LYMPHOCYTIC LEUKAEMIA
     Route: 048
     Dates: start: 20141230
  3. VITAMIN D [Concomitant]
     Active Substance: CHOLECALCIFEROL
  4. PROLIA [Concomitant]
     Active Substance: DENOSUMAB

REACTIONS (2)
  - Onychoclasis [Unknown]
  - Incorrect dose administered [Not Recovered/Not Resolved]

NARRATIVE: CASE EVENT DATE: 20141230
